FAERS Safety Report 4420512-4 (Version None)
Quarter: 2004Q3

REPORT INFORMATION
  Report Type: 
  Country: None (occurrence: None)
  Receive Date: 20040805
  Receipt Date: 20040805
  Transmission Date: 20050211
  Serious: Yes (Other)
  Sender: FDA-Public Use
  Company Number: None

PATIENT
  Age: 82 Year
  Sex: Male
  Weight: 71.2 kg

DRUGS (17)
  1. OXYBUTYNIN CHLORIDE [Suspect]
  2. TOLTERODINE TARTRATE [Concomitant]
  3. SODIUM CHLORIDE INJ [Concomitant]
  4. OXYCODONE HCL/ACETAMINOPHEN [Concomitant]
  5. ARTIFICIAL TEARS POLYVINYL ALCOHOL [Concomitant]
  6. CAMPHOR MENTHOL [Concomitant]
  7. LANOXIN [Concomitant]
  8. FLUNISOLIDE [Concomitant]
  9. FOSINOPRIL NA [Concomitant]
  10. FUROSEMIDE [Concomitant]
  11. GABAPENTIN [Concomitant]
  12. METOPROLOL TARTRATE [Concomitant]
  13. MOISTURIZING LOTION [Concomitant]
  14. MULTIVITAMIN LIQUID [Concomitant]
  15. OXYBUTYNIN CHLORIDE [Concomitant]
  16. RANITIDINE [Concomitant]
  17. SERTRALINE HCL [Concomitant]

REACTIONS (1)
  - DRY MOUTH [None]
